FAERS Safety Report 5467996-0 (Version None)
Quarter: 2007Q3

REPORT INFORMATION
  Report Type: 
  Country: None (occurrence: None)
  Receive Date: 20070925
  Receipt Date: 20070925
  Transmission Date: 20080115
  Serious: No
  Sender: FDA-Public Use
  Company Number: None

PATIENT
  Age: 57 Year
  Sex: Female
  Weight: 111.5849 kg

DRUGS (2)
  1. ZOMETA [Suspect]
     Indication: HEPATIC NEOPLASM MALIGNANT
     Dosage: IV
     Route: 042
     Dates: start: 20050223
  2. AREDIA [Suspect]
     Dosage: IV
     Route: 042
     Dates: start: 20050223

REACTIONS (1)
  - ORAL DISORDER [None]
